FAERS Safety Report 7507799-6 (Version None)
Quarter: 2011Q2

REPORT INFORMATION
  Report Type: 
  Country: None (occurrence: None)
  Receive Date: 20110527
  Receipt Date: 20110519
  Transmission Date: 20111010
  Serious: No
  Sender: FDA-Public Use
  Company Number: US-BIOGENIDEC-2011BI019055

PATIENT
  Age: 57 Year
  Sex: Female

DRUGS (1)
  1. TYSABRI [Suspect]
     Indication: MULTIPLE SCLEROSIS
     Route: 042
     Dates: start: 20100315

REACTIONS (6)
  - MUSCULAR WEAKNESS [None]
  - DIPLOPIA [None]
  - HEMIPARESIS [None]
  - MULTIPLE SCLEROSIS RELAPSE [None]
  - MEMORY IMPAIRMENT [None]
  - NUCLEAR MAGNETIC RESONANCE IMAGING ABNORMAL [None]
